FAERS Safety Report 15131846 (Version 1)
Quarter: 2018Q3

REPORT INFORMATION
  Report Type: Spontaneous
  Country: None (occurrence: US)
  Receive Date: 20180711
  Receipt Date: 20180711
  Transmission Date: 20181010
  Serious: Yes (Other)
  Sender: FDA-Public Use
  Company Number: US-SPEAR PHARMACEUTICALS-2051806

PATIENT
  Age: 7 Year
  Sex: Male
  Weight: 24.55 kg

DRUGS (2)
  1. FLUOROURACIL. [Suspect]
     Active Substance: FLUOROURACIL
     Indication: SKIN PAPILLOMA
     Route: 061
     Dates: start: 20180624, end: 20180624
  2. LIQUID NITROGEN FOR WARTS [Concomitant]

REACTIONS (1)
  - Seizure [Recovered/Resolved]

NARRATIVE: CASE EVENT DATE: 20180706
